FAERS Safety Report 9870585 (Version 2)
Quarter: 2014Q1

REPORT INFORMATION
  Report Type: Spontaneous
  Country: DE (occurrence: DE)
  Receive Date: 20140205
  Receipt Date: 20140205
  Transmission Date: 20141002
  Serious: Yes (Other)
  Sender: FDA-Public Use
  Company Number: PHHY2013DE142016

PATIENT
  Age: 82 Year
  Sex: Male

DRUGS (6)
  1. FORMOTEROL FUMARATE [Suspect]
     Indication: CHRONIC OBSTRUCTIVE PULMONARY DISEASE
     Dosage: 1 DF, BID: 1 PUFF MORNING AND 1 PUFF EVENING
     Route: 055
     Dates: start: 2009
  2. FORMOTEROL FUMARATE [Suspect]
     Dosage: UNK UKN, UNK
     Route: 055
     Dates: start: 20130605
  3. BUDIAIR [Concomitant]
     Dosage: 200 UG, UNK
  4. SPIRIVA [Concomitant]
     Dosage: 18 UG, UNK
  5. KARVEZIDE [Concomitant]
     Dosage: 300/12.5 MG
  6. AMLODIPINE [Concomitant]
     Dosage: 5 MG, UNK

REACTIONS (4)
  - Feeling abnormal [Recovered/Resolved]
  - Underdose [Recovered/Resolved]
  - Dyspnoea [Recovered/Resolved]
  - Malaise [Unknown]
